FAERS Safety Report 24618744 (Version 3)
Quarter: 2024Q4

REPORT INFORMATION
  Report Type: Spontaneous
  Country: CA (occurrence: CA)
  Receive Date: 20241114
  Receipt Date: 20241226
  Transmission Date: 20250115
  Serious: Yes (Other)
  Sender: ROCHE
  Company Number: CA-ROCHE-10000127477

PATIENT
  Sex: Female

DRUGS (8)
  1. ACTEMRA [Suspect]
     Active Substance: TOCILIZUMAB
     Indication: Rheumatoid arthritis
     Route: 058
  2. ACTEMRA [Suspect]
     Active Substance: TOCILIZUMAB
     Route: 058
  3. ACTEMRA [Suspect]
     Active Substance: TOCILIZUMAB
     Route: 058
  4. ACTEMRA [Suspect]
     Active Substance: TOCILIZUMAB
     Route: 058
  5. ACTEMRA [Suspect]
     Active Substance: TOCILIZUMAB
     Route: 058
  6. ACTEMRA [Suspect]
     Active Substance: TOCILIZUMAB
     Route: 050
  7. RITUXIMAB [Suspect]
     Active Substance: RITUXIMAB
     Indication: Product used for unknown indication
     Route: 042
  8. TOCILIZUMAB [Suspect]
     Active Substance: TOCILIZUMAB
     Indication: Rheumatoid arthritis
     Route: 058

REACTIONS (16)
  - Maternal exposure during pregnancy [Unknown]
  - Infusion related reaction [Not Recovered/Not Resolved]
  - Off label use [Unknown]
  - Overdose [Unknown]
  - Pain [Not Recovered/Not Resolved]
  - Prescribed overdose [Unknown]
  - Product use issue [Unknown]
  - Intentional product misuse [Unknown]
  - Joint swelling [Not Recovered/Not Resolved]
  - Food allergy [Not Recovered/Not Resolved]
  - Headache [Not Recovered/Not Resolved]
  - Hepatic enzyme increased [Not Recovered/Not Resolved]
  - Hyperhidrosis [Not Recovered/Not Resolved]
  - Hypertension [Not Recovered/Not Resolved]
  - Hypersensitivity [Not Recovered/Not Resolved]
  - Immunodeficiency [Not Recovered/Not Resolved]
